FAERS Safety Report 15370722 (Version 1)
Quarter: 2018Q4

REPORT INFORMATION
  Report Type: Spontaneous
  Country: FR (occurrence: FR)
  Receive Date: 20180911
  Receipt Date: 20180911
  Transmission Date: 20190204
  Serious: Yes (Other)
  Sender: FDA-Public Use
  Company Number: FR-TEVA-2018-FR-953511

PATIENT
  Age: 73 Year
  Sex: Male
  Weight: 56 kg

DRUGS (12)
  1. PARACETAMOL [Interacting]
     Active Substance: ACETAMINOPHEN
     Indication: PAIN
     Dosage: 4 GRAM DAILY; IF NECESSARY
     Route: 048
     Dates: start: 20180705
  2. EUPRESSYL 60 MG, G?LULE [Concomitant]
     Active Substance: URAPIDIL
  3. TAHOR [Interacting]
     Active Substance: ATORVASTATIN CALCIUM
     Indication: CORONARY ARTERY DISEASE
     Dosage: 40 MILLIGRAM DAILY;
     Route: 048
     Dates: start: 2014
  4. TRAMADOL (CHLORHYDRATE DE) [Suspect]
     Active Substance: TRAMADOL HYDROCHLORIDE
     Indication: PAIN
     Dosage: 200 MILLIGRAM DAILY; FORM LP, MORNING AND EVENING IF NECESSARY
     Route: 048
     Dates: start: 201807
  5. COUMADINE 2 MG, COMPRIM? S?CABLE [Interacting]
     Active Substance: WARFARIN SODIUM
     Indication: CORONARY ARTERY DISEASE
     Dosage: 3 MILLIGRAM DAILY;
     Route: 048
     Dates: start: 20180711, end: 20180728
  6. NEBIVOLOL. [Concomitant]
     Active Substance: NEBIVOLOL
  7. METFORMINE [Concomitant]
     Active Substance: METFORMIN HYDROCHLORIDE
  8. COUMADINE 2 MG, COMPRIM? S?CABLE [Interacting]
     Active Substance: WARFARIN SODIUM
     Indication: CORONARY ARTERY DISEASE
     Route: 048
     Dates: start: 20180705, end: 20180708
  9. OGASTORO 15 MG, COMPRIM? ORODISPERSIBLE [Interacting]
     Active Substance: LANSOPRAZOLE
     Indication: GASTRITIS
     Dosage: 15 MILLIGRAM DAILY;
     Route: 048
     Dates: start: 201807
  10. CREON [Concomitant]
     Active Substance: PANCRELIPASE AMYLASE\PANCRELIPASE LIPASE\PANCRELIPASE PROTEASE
  11. SEROPLEX 10 MG, COMPRIM? PELLICUL? S?CABLE [Interacting]
     Active Substance: ESCITALOPRAM OXALATE
     Indication: PRODUCT USED FOR UNKNOWN INDICATION
     Dosage: 10 MILLIGRAM DAILY;
     Route: 048
     Dates: start: 2014
  12. KARDEGIC [Concomitant]
     Active Substance: ASPIRIN DL-LYSINE

REACTIONS (2)
  - International normalised ratio increased [Recovered/Resolved]
  - Drug interaction [Unknown]

NARRATIVE: CASE EVENT DATE: 20180729
